FAERS Safety Report 8049993-4 (Version None)
Quarter: 2012Q1

REPORT INFORMATION
  Report Type: 
  Country: None (occurrence: None)
  Receive Date: 20120117
  Receipt Date: 20120111
  Transmission Date: 20120608
  Serious: Yes (Hospitalization, Other)
  Sender: FDA-Public Use
  Company Number: US-PFIZER INC-2011261258

PATIENT
  Sex: Male

DRUGS (10)
  1. GEMFIBROZIL [Concomitant]
     Indication: BLOOD CHOLESTEROL
     Dosage: UNK
     Dates: start: 19950101
  2. XANAX [Concomitant]
     Indication: ANXIETY
     Dosage: UNK
     Dates: start: 20050101
  3. CARDURA [Concomitant]
     Indication: HYPERTENSION
     Dosage: UNK
     Dates: start: 19950101
  4. FLEXERIL [Concomitant]
     Indication: PAIN
     Dosage: UNK
     Dates: start: 20060101, end: 20090101
  5. CHANTIX [Suspect]
     Indication: SMOKING CESSATION THERAPY
     Dosage: 0.5MG/1MG
     Dates: start: 20070901, end: 20071101
  6. NEXIUM [Concomitant]
     Indication: GASTROOESOPHAGEAL REFLUX DISEASE
     Dosage: UNK
     Dates: start: 20040101
  7. LOTREL [Concomitant]
     Indication: HYPERTENSION
     Dosage: UNK
     Dates: start: 19950101
  8. LIPITOR [Concomitant]
     Indication: BLOOD CHOLESTEROL
     Dosage: UNK
     Dates: start: 19950101
  9. SYNTHROID [Concomitant]
     Indication: HYPOTHYROIDISM
     Dosage: UNK
     Dates: start: 20040101
  10. TRAMADOL [Concomitant]
     Indication: PAIN
     Dosage: UNK
     Dates: start: 20060101, end: 20090101

REACTIONS (10)
  - SUICIDAL IDEATION [None]
  - TACHYPHRENIA [None]
  - NAUSEA [None]
  - DISTURBANCE IN ATTENTION [None]
  - ANXIETY [None]
  - ABNORMAL BEHAVIOUR [None]
  - NERVOUSNESS [None]
  - DEPRESSION [None]
  - MEMORY IMPAIRMENT [None]
  - DIZZINESS [None]
